FAERS Safety Report 21753657 (Version 1)
Quarter: 2022Q4

REPORT INFORMATION
  Report Type: Spontaneous
  Country: US (occurrence: US)
  Receive Date: 20221220
  Receipt Date: 20221220
  Transmission Date: 20230113
  Serious: Yes (Hospitalization, Other)
  Sender: FDA-Public Use
  Company Number: US-SA-2022SA504404

PATIENT
  Age: 48 Year
  Sex: Female

DRUGS (4)
  1. DOCETAXEL [Suspect]
     Active Substance: DOCETAXEL
     Indication: Mismatch repair cancer syndrome
     Dosage: UNK, QCY
  2. DOCETAXEL [Suspect]
     Active Substance: DOCETAXEL
     Indication: Ovarian clear cell carcinoma
  3. CARBOPLATIN [Concomitant]
     Active Substance: CARBOPLATIN
     Indication: Mismatch repair cancer syndrome
     Dosage: UNK UNK, QCY
  4. CARBOPLATIN [Concomitant]
     Active Substance: CARBOPLATIN
     Indication: Ovarian clear cell carcinoma

REACTIONS (13)
  - Dermatomyositis [Recovering/Resolving]
  - Muscular weakness [Recovering/Resolving]
  - Rash [Recovering/Resolving]
  - Movement disorder [Recovering/Resolving]
  - Arthritis [Recovering/Resolving]
  - Heliotrope rash [Recovering/Resolving]
  - Erythema [Recovering/Resolving]
  - Raynaud^s phenomenon [Recovering/Resolving]
  - Oedema peripheral [Recovering/Resolving]
  - Dysphagia [Unknown]
  - Secretion discharge [Unknown]
  - Dyspnoea [Unknown]
  - Dysphonia [Unknown]
